FAERS Safety Report 6884569-3 (Version None)
Quarter: 2010Q3

REPORT INFORMATION
  Report Type: 
  Country: None (occurrence: None)
  Receive Date: 20100729
  Receipt Date: 20070712
  Transmission Date: 20110219
  Serious: Yes (Hospitalization, Other)
  Sender: FDA-Public Use
  Company Number: US-PFIZER INC-2007058423

PATIENT
  Sex: Male
  Weight: 88.5 kg

DRUGS (4)
  1. CELEBREX [Suspect]
     Indication: BACK INJURY
     Dosage: ONE TO TWO TIMES
     Dates: start: 20010101
  2. CELEBREX [Suspect]
     Indication: JOINT INJURY
  3. BEXTRA [Suspect]
     Indication: BACK INJURY
     Dosage: ONE TO TWO TIMES
     Dates: start: 20010501, end: 20010601
  4. BEXTRA [Suspect]
     Indication: JOINT INJURY

REACTIONS (1)
  - CHEST PAIN [None]
